FAERS Safety Report 23263317 (Version 1)
Quarter: 2023Q4

REPORT INFORMATION
  Report Type: Spontaneous
  Country: US (occurrence: None)
  Receive Date: 20231204
  Receipt Date: 20231204
  Transmission Date: 20240110
  Serious: Yes (Hospitalization)
  Sender: FDA-Public Use
  Company Number: None

PATIENT
  Age: 56 Year
  Sex: Female
  Weight: 66.15 kg

DRUGS (1)
  1. PROLIA [Suspect]
     Active Substance: DENOSUMAB
     Indication: Osteoporosis
     Dosage: FREQUENCY : ONCE;?
     Route: 058
     Dates: start: 20231117, end: 20231117

REACTIONS (2)
  - Hypocalcaemia [None]
  - Hypomagnesaemia [None]

NARRATIVE: CASE EVENT DATE: 20231117
